FAERS Safety Report 8503032 (Version 3)
Quarter: 2013Q2

REPORT INFORMATION
  Report Type: Spontaneous
  Country: CA (occurrence: CA)
  Receive Date: 20120411
  Receipt Date: 20130506
  Transmission Date: 20140414
  Serious: Yes (Hospitalization, Other)
  Sender: FDA-Public Use
  Company Number: CA-JNJFOC-20120400210

PATIENT
  Age: 49 Year
  Sex: Male
  Weight: 85 kg

DRUGS (8)
  1. REMICADE [Suspect]
     Indication: CROHN^S DISEASE
     Route: 042
     Dates: start: 20110916, end: 20120330
  2. REMICADE [Suspect]
     Indication: CROHN^S DISEASE
     Route: 042
     Dates: start: 2011
  3. REMICADE [Suspect]
     Indication: CROHN^S DISEASE
     Route: 042
     Dates: start: 2004
  4. WELLBUTRIN [Concomitant]
     Route: 065
  5. VITAMIN B12 [Concomitant]
     Route: 065
  6. ARTHROTEC [Concomitant]
     Route: 065
  7. PAXIL [Concomitant]
     Route: 065
  8. REMERON [Concomitant]
     Route: 065

REACTIONS (11)
  - Infusion related reaction [Recovering/Resolving]
  - Abdominal pain [Recovering/Resolving]
  - Pallor [Recovering/Resolving]
  - Cold sweat [Recovering/Resolving]
  - Dizziness [Recovering/Resolving]
  - Crohn^s disease [Not Recovered/Not Resolved]
  - Pruritus [Recovered/Resolved]
  - Chills [Recovered/Resolved]
  - Pyrexia [Recovered/Resolved]
  - Nausea [Recovering/Resolving]
  - Asthenia [Recovering/Resolving]
